FAERS Safety Report 18220317 (Version 5)
Quarter: 2021Q1

REPORT INFORMATION
  Report Type: Report from Study
  Country: None (occurrence: US)
  Receive Date: 20200902
  Receipt Date: 20210226
  Transmission Date: 20210419
  Serious: Yes (Other)
  Sender: FDA-Public Use
  Company Number: US-ABBVIE-20P-163-3304351-00

PATIENT
  Age: 60 Year
  Sex: Female

DRUGS (9)
  1. IMBRUVICA [Suspect]
     Active Substance: IBRUTINIB
     Route: 048
     Dates: start: 202002
  2. IMBRUVICA [Suspect]
     Active Substance: IBRUTINIB
     Route: 048
     Dates: start: 20201120
  3. LEVAQUIN [Suspect]
     Active Substance: LEVOFLOXACIN
     Indication: PRODUCT USED FOR UNKNOWN INDICATION
     Route: 065
  4. IMBRUVICA [Suspect]
     Active Substance: IBRUTINIB
     Route: 048
     Dates: start: 20200204, end: 2020
  5. IMBRUVICA [Suspect]
     Active Substance: IBRUTINIB
     Route: 048
     Dates: start: 20200205
  6. IMBRUVICA [Suspect]
     Active Substance: IBRUTINIB
     Route: 048
     Dates: start: 20200207
  7. IMBRUVICA [Suspect]
     Active Substance: IBRUTINIB
     Route: 048
  8. IMBRUVICA [Suspect]
     Active Substance: IBRUTINIB
     Route: 048
     Dates: start: 20200207
  9. IMBRUVICA [Suspect]
     Active Substance: IBRUTINIB
     Indication: NON-HODGKIN^S LYMPHOMA
     Route: 048
     Dates: start: 20200207

REACTIONS (28)
  - Fatigue [Unknown]
  - Biopsy cervix [Unknown]
  - Nephrolithiasis [Unknown]
  - Oedema peripheral [Recovered/Resolved]
  - Insomnia [Unknown]
  - Vomiting [Unknown]
  - Rash [Unknown]
  - Pain [Unknown]
  - Nitrituria [Unknown]
  - Pustule [Unknown]
  - White blood cell count increased [Unknown]
  - Chills [Unknown]
  - Kidney infection [Not Recovered/Not Resolved]
  - Osteoporosis [Unknown]
  - Erythema [Unknown]
  - Swelling [Unknown]
  - Off label use [Unknown]
  - Arthropathy [Unknown]
  - Myalgia [Not Recovered/Not Resolved]
  - Malaise [Unknown]
  - Arthralgia [Not Recovered/Not Resolved]
  - White blood cell count abnormal [Unknown]
  - Bladder disorder [Unknown]
  - Musculoskeletal disorder [Not Recovered/Not Resolved]
  - Hypersensitivity [Unknown]
  - Gait inability [Unknown]
  - Illness [Unknown]
  - Vomiting [Unknown]

NARRATIVE: CASE EVENT DATE: 2020
